FAERS Safety Report 10198483 (Version 1)
Quarter: 2014Q2

REPORT INFORMATION
  Report Type: Spontaneous
  Country: US (occurrence: US)
  Receive Date: 20140527
  Receipt Date: 20140527
  Transmission Date: 20141212
  Serious: No
  Sender: FDA-Public Use
  Company Number: US-NOVEN-13US007892

PATIENT
  Age: 5 Year
  Sex: Female
  Weight: 43.54 kg

DRUGS (3)
  1. DAYTRANA [Suspect]
     Indication: AUTISM
     Dosage: 15 MG, UNK
     Route: 062
     Dates: start: 20131004
  2. DAYTRANA [Suspect]
     Indication: OBSESSIVE-COMPULSIVE DISORDER
  3. DAYTRANA [Suspect]
     Indication: PSYCHOMOTOR HYPERACTIVITY

REACTIONS (4)
  - Application site erythema [Not Recovered/Not Resolved]
  - Off label use [Not Recovered/Not Resolved]
  - Drug prescribing error [Not Recovered/Not Resolved]
  - Product quality issue [Not Recovered/Not Resolved]
